FAERS Safety Report 25027041 (Version 6)
Quarter: 2025Q3

REPORT INFORMATION
  Report Type: Spontaneous
  Country: US (occurrence: US)
  Receive Date: 20250301
  Receipt Date: 20250724
  Transmission Date: 20251021
  Serious: No
  Sender: SANOFI AVENTIS
  Company Number: US-SA-2025SA056594

PATIENT
  Age: 29 Year
  Sex: Male

DRUGS (5)
  1. DUPIXENT [Suspect]
     Active Substance: DUPILUMAB
     Indication: Eczema
     Route: 058
     Dates: start: 20241209, end: 20241209
  2. DUPIXENT [Suspect]
     Active Substance: DUPILUMAB
     Indication: Dermatitis atopic
     Dosage: 300 MG, QOW
     Route: 058
     Dates: start: 20241224
  3. NEMLUVIO [Suspect]
     Active Substance: NEMOLIZUMAB-ILTO
  4. ESTRADIOL [Concomitant]
     Active Substance: ESTRADIOL
  5. BICALUTAMIDE [Concomitant]
     Active Substance: BICALUTAMIDE

REACTIONS (14)
  - Pyrexia [Recovering/Resolving]
  - Chills [Recovered/Resolved]
  - Night sweats [Recovering/Resolving]
  - Abdominal pain upper [Not Recovered/Not Resolved]
  - Cough [Recovered/Resolved]
  - Mood swings [Unknown]
  - Dry skin [Unknown]
  - Rash macular [Unknown]
  - Dermatitis atopic [Unknown]
  - Erythema [Unknown]
  - Pruritus [Unknown]
  - Therapeutic response shortened [Unknown]
  - Eczema [Unknown]
  - Rash [Unknown]

NARRATIVE: CASE EVENT DATE: 20250101
